FAERS Safety Report 10543389 (Version 1)
Quarter: 2014Q4

REPORT INFORMATION
  Report Type: Spontaneous
  Country: US (occurrence: None)
  Receive Date: 20141023
  Receipt Date: 20141023
  Transmission Date: 20150529
  Serious: Yes (Other)
  Sender: FDA-Public Use
  Company Number: 2014HINSPO0945

PATIENT
  Age: 70 Year
  Sex: Male

DRUGS (1)
  1. FINASTERIDE. [Suspect]
     Active Substance: FINASTERIDE
     Indication: PRODUCT USED FOR UNKNOWN INDICATION
     Dates: start: 20140515

REACTIONS (5)
  - Renal cyst [None]
  - Arthralgia [None]
  - Musculoskeletal pain [None]
  - Musculoskeletal discomfort [None]
  - Gait disturbance [None]
